FAERS Safety Report 17605102 (Version 1)
Quarter: 2020Q1

REPORT INFORMATION
  Report Type: Report from Study
  Country: IT (occurrence: IT)
  Receive Date: 20200331
  Receipt Date: 20200331
  Transmission Date: 20200409
  Serious: Yes (Other)
  Sender: FDA-Public Use
  Company Number: IT-VIIV HEALTHCARE LIMITED-IT2020GSK050397

PATIENT

DRUGS (2)
  1. DOLUTEGRAVIR [Suspect]
     Active Substance: DOLUTEGRAVIR
     Indication: HIV INFECTION
     Dosage: UNK
  2. DARUNAVIR + RITONAVIR [Interacting]
     Active Substance: DARUNAVIR\RITONAVIR
     Indication: HIV INFECTION
     Dosage: UNK

REACTIONS (4)
  - Pathogen resistance [Unknown]
  - Viral mutation identified [Unknown]
  - Drug interaction [Unknown]
  - Blood HIV RNA increased [Not Recovered/Not Resolved]
